FAERS Safety Report 5711402-5 (Version None)
Quarter: 2008Q2

REPORT INFORMATION
  Report Type: 
  Country: None (occurrence: None)
  Receive Date: 20080421
  Receipt Date: 20080410
  Transmission Date: 20081010
  Serious: Yes (Other)
  Sender: FDA-Public Use
  Company Number: CN-ROCHE-558302

PATIENT
  Sex: Female
  Weight: 41 kg

DRUGS (3)
  1. CELLCEPT [Suspect]
     Route: 048
     Dates: start: 20020522
  2. SANDIMMUNE [Concomitant]
     Indication: RENAL TRANSPLANT
     Route: 048
     Dates: start: 20020522
  3. 1 CONCOMITANT DRUG [Concomitant]
     Indication: RENAL TRANSPLANT
     Dosage: DRUG REPORTED AS:PREDNISONE ACETATE
     Route: 048
     Dates: start: 20020522

REACTIONS (2)
  - BLADDER CANCER [None]
  - HYPERTHYROIDISM [None]
